FAERS Safety Report 4697357-3 (Version None)
Quarter: 2005Q2

REPORT INFORMATION
  Report Type: 
  Country: None (occurrence: None)
  Receive Date: 20050622
  Receipt Date: 20050428
  Transmission Date: 20051028
  Serious: Yes (Hospitalization)
  Sender: FDA-Public Use
  Company Number: ESWYE633629APR05

PATIENT
  Sex: Male

DRUGS (6)
  1. ENBREL [Suspect]
     Indication: RHEUMATOID ARTHRITIS
     Dosage: UNKNOWN
     Route: 058
     Dates: start: 20040913, end: 20050422
  2. URBASON [Concomitant]
     Dates: start: 20020215
  3. METHOTREXATE [Concomitant]
     Dates: start: 20021120, end: 20030501
  4. METHOTREXATE [Concomitant]
     Dates: end: 20040912
  5. METHOTREXATE [Concomitant]
     Dates: start: 20040913, end: 20050414
  6. METHOTREXATE [Concomitant]
     Dates: start: 20050531

REACTIONS (4)
  - DEPRESSED LEVEL OF CONSCIOUSNESS [None]
  - DIZZINESS [None]
  - HYPOCHONDRIASIS [None]
  - PALLOR [None]
